FAERS Safety Report 6990296-4 (Version None)
Quarter: 2010Q3

REPORT INFORMATION
  Report Type: 
  Country: None (occurrence: None)
  Receive Date: 20100916
  Receipt Date: 20100528
  Transmission Date: 20110219
  Serious: Yes (Other)
  Sender: FDA-Public Use
  Company Number: GB-PFIZER INC-2010036118

PATIENT
  Sex: Female

DRUGS (3)
  1. PREGABALIN [Suspect]
     Dosage: UNK
     Route: 050
  2. TRAZODONE [Suspect]
     Dosage: UNK
     Route: 050
  3. CIPRALEX [Suspect]
     Dosage: 20 MG, 1X/DAY
     Route: 050

REACTIONS (1)
  - ABORTION SPONTANEOUS [None]
